FAERS Safety Report 4565380-5 (Version None)
Quarter: 2005Q1

REPORT INFORMATION
  Report Type: 
  Country: None (occurrence: None)
  Receive Date: 20050125
  Receipt Date: 20050125
  Transmission Date: 20050727
  Serious: Yes (Hospitalization)
  Sender: FDA-Public Use
  Company Number: None

PATIENT
  Sex: Male
  Weight: 83.4619 kg

DRUGS (3)
  1. CRESTOR [Suspect]
     Indication: BLOOD CHOLESTEROL INCREASED
     Dosage: 1 QD ORAL
     Route: 048
  2. FLONASE [Concomitant]
  3. PROPECIA [Concomitant]

REACTIONS (4)
  - ASTHENIA [None]
  - MYOPATHY [None]
  - PAIN [None]
  - RHABDOMYOLYSIS [None]
